FAERS Safety Report 5790325-X (Version None)
Quarter: 2008Q2

REPORT INFORMATION
  Report Type: 
  Country: None (occurrence: None)
  Receive Date: 20080626
  Receipt Date: 20080505
  Transmission Date: 20081010
  Serious: No
  Sender: FDA-Public Use
  Company Number: A0708601A

PATIENT

DRUGS (1)
  1. ALLI [Suspect]
     Indication: DRUG USE FOR UNKNOWN INDICATION
     Route: 048

REACTIONS (13)
  - ANOREXIA [None]
  - CONSTIPATION [None]
  - DRUG INEFFECTIVE [None]
  - HAIR TEXTURE ABNORMAL [None]
  - HUNGER [None]
  - INFLUENZA [None]
  - MALAISE [None]
  - NASOPHARYNGITIS [None]
  - ONYCHOCLASIS [None]
  - PAIN IN EXTREMITY [None]
  - STARVATION [None]
  - WEIGHT FLUCTUATION [None]
  - WEIGHT INCREASED [None]
